FAERS Safety Report 6863003-3 (Version None)
Quarter: 2010Q3

REPORT INFORMATION
  Report Type: 
  Country: None (occurrence: None)
  Receive Date: 20100719
  Receipt Date: 20100707
  Transmission Date: 20110219
  Serious: Yes (Hospitalization)
  Sender: FDA-Public Use
  Company Number: 013727

PATIENT
  Sex: Male

DRUGS (4)
  1. VIMPAT [Suspect]
     Indication: EPILEPSY
     Dosage: (50 MG BID ORAL), (100 MG BID ORAL), (REDUCED DOSE), (UPTITRATING DOSE)
     Route: 048
     Dates: start: 20100301
  2. VIMPAT [Suspect]
     Indication: EPILEPSY
     Dosage: (50 MG BID ORAL), (100 MG BID ORAL), (REDUCED DOSE), (UPTITRATING DOSE)
     Route: 048
     Dates: start: 20100301
  3. KEPPRA [Suspect]
     Indication: EPILEPSY
     Dosage: (1500 MG BID ORAL)
     Route: 048
     Dates: start: 20060101
  4. LAMOTRIGINE [Concomitant]

REACTIONS (3)
  - CEREBRAL ARTERY EMBOLISM [None]
  - CONVULSION [None]
  - DISEASE RECURRENCE [None]
